FAERS Safety Report 5660912-8 (Version None)
Quarter: 2008Q1

REPORT INFORMATION
  Report Type: 
  Country: None (occurrence: None)
  Receive Date: 20080311
  Receipt Date: 20080228
  Transmission Date: 20080703
  Serious: Yes (Hospitalization, Other)
  Sender: FDA-Public Use
  Company Number: US-WYE-H02937608

PATIENT
  Age: 78 Year
  Sex: Male

DRUGS (3)
  1. PANTOPRAZOLE [Suspect]
     Dosage: UNKNOWN
  2. TRIAMTERENE AND HYDROCHLOROTHIAZIDE [Concomitant]
     Dosage: UNKNOWN
  3. TAMSULOSIN HCL [Concomitant]
     Dosage: UNKNOWN

REACTIONS (1)
  - SMALL INTESTINE CARCINOMA [None]
